FAERS Safety Report 5652574-0 (Version None)
Quarter: 2008Q1

REPORT INFORMATION
  Report Type: 
  Country: None (occurrence: None)
  Receive Date: 20080305
  Receipt Date: 20080305
  Transmission Date: 20080703
  Serious: Yes (Life-Threatening, Other)
  Sender: FDA-Public Use
  Company Number: None

PATIENT
  Age: 65 Year
  Sex: Female
  Weight: 68.0396 kg

DRUGS (1)
  1. NORTRIPTYLINE HCL [Suspect]
     Indication: SPINAL COLUMN STENOSIS
     Dosage: 50 MG DAILY OTHER
     Route: 050
     Dates: start: 20070930, end: 20080224

REACTIONS (10)
  - ABNORMAL BEHAVIOUR [None]
  - CONTUSION [None]
  - EXCORIATION [None]
  - FALL [None]
  - INJURY [None]
  - LOSS OF CONTROL OF LEGS [None]
  - MEMORY IMPAIRMENT [None]
  - MUSCLE DISORDER [None]
  - THINKING ABNORMAL [None]
  - WALKING AID USER [None]
